FAERS Safety Report 6875422-X (Version None)
Quarter: 2010Q3

REPORT INFORMATION
  Report Type: 
  Country: None (occurrence: None)
  Receive Date: 20100727
  Receipt Date: 20080421
  Transmission Date: 20110219
  Serious: Yes (Hospitalization, Other)
  Sender: FDA-Public Use
  Company Number: US-PFIZER INC-2007019924

PATIENT
  Sex: Male
  Weight: 88.5 kg

DRUGS (3)
  1. CELEBREX [Suspect]
     Indication: MUSCLE TIGHTNESS
     Dates: start: 19940101
  2. CELEBREX [Suspect]
     Indication: MYALGIA
  3. BEXTRA [Suspect]
     Indication: MUSCLE TIGHTNESS

REACTIONS (4)
  - ANXIETY [None]
  - HYPERTENSION [None]
  - MYOCARDIAL INFARCTION [None]
  - ULCER [None]
